FAERS Safety Report 25440030 (Version 1)
Quarter: 2025Q2

REPORT INFORMATION
  Report Type: Spontaneous
  Country: US (occurrence: US)
  Receive Date: 20250616
  Receipt Date: 20250616
  Transmission Date: 20250716
  Serious: Yes (Other)
  Sender: CATALYST PHARMA
  Company Number: US-CATALYSTPHARMACEUTICALPARTNERS-US-CATA-25-00814

PATIENT
  Sex: Male

DRUGS (1)
  1. FYCOMPA [Suspect]
     Active Substance: PERAMPANEL
     Indication: Product used for unknown indication
     Dosage: 4 MG TABLET- TAKE 1 TABLET EVERY EVENING
     Route: 048

REACTIONS (3)
  - Seizure [Unknown]
  - Therapy interrupted [Unknown]
  - Treatment noncompliance [Unknown]
